FAERS Safety Report 16052700 (Version 1)
Quarter: 2019Q1

REPORT INFORMATION
  Report Type: Spontaneous
  Country: PT (occurrence: PT)
  Receive Date: 20190308
  Receipt Date: 20190308
  Transmission Date: 20190418
  Serious: Yes (Hospitalization)
  Sender: FDA-Public Use
  Company Number: PT-ALLERGAN-1908499US

PATIENT
  Sex: Female

DRUGS (15)
  1. CALCITRIOL. [Concomitant]
     Active Substance: CALCITRIOL
     Indication: PRODUCT USED FOR UNKNOWN INDICATION
     Dosage: 0.25 MG, AT BREAKFAST
     Route: 065
  2. ETHYL LOFLAZEPATE [Concomitant]
     Active Substance: ETHYL LOFLAZEPATE
     Indication: PRODUCT USED FOR UNKNOWN INDICATION
     Dosage: 1 DF, QHS
     Route: 065
  3. LIORESAL [Concomitant]
     Active Substance: BACLOFEN
     Indication: PRODUCT USED FOR UNKNOWN INDICATION
     Dosage: 1 DF, AT BREAKFAST, LUNCH AND DINNER
     Route: 065
  4. TECFIDERA [Suspect]
     Active Substance: DIMETHYL FUMARATE
     Indication: RELAPSING-REMITTING MULTIPLE SCLEROSIS
     Dosage: 240 MG, AT BREAKFAST AND AT DINNER
     Route: 048
     Dates: start: 20181112
  5. FUROLAX [Concomitant]
     Dosage: 1 DF, PER DAY
  6. VICTAN [Concomitant]
     Active Substance: ETHYL LOFLAZEPATE
     Indication: PRODUCT USED FOR UNKNOWN INDICATION
     Dosage: 1 DF, QHS
     Route: 065
  7. SIRDALUD [Concomitant]
     Active Substance: TIZANIDINE
     Indication: PRODUCT USED FOR UNKNOWN INDICATION
     Dosage: 12 MG, AT LUNCH AND BEDTIME
     Route: 065
  8. FOSFOMYCIN TROMETHAMINE - BP [Suspect]
     Active Substance: FOSFOMYCIN TROMETHAMINE
     Indication: PROPHYLAXIS URINARY TRACT INFECTION
     Dosage: UNK
     Route: 065
     Dates: end: 20190130
  9. FOLIC ACID. [Concomitant]
     Active Substance: FOLIC ACID
     Indication: PRODUCT USED FOR UNKNOWN INDICATION
     Dosage: 1 DF, AT DINNER
     Route: 065
  10. DIAZEPAM. [Concomitant]
     Active Substance: DIAZEPAM
     Indication: PRODUCT USED FOR UNKNOWN INDICATION
     Dosage: 1 DF, AT DINNER
     Route: 065
  11. LACTOFLORA URO [Concomitant]
     Indication: PRODUCT USED FOR UNKNOWN INDICATION
     Dosage: 1 TABLET DURING 30 DAYS
     Route: 065
  12. ZYRTEC [Concomitant]
     Active Substance: CETIRIZINE HYDROCHLORIDE
     Indication: PRODUCT USED FOR UNKNOWN INDICATION
     Route: 065
  13. IMODIUM [Concomitant]
     Active Substance: LOPERAMIDE HYDROCHLORIDE
     Indication: PRODUCT USED FOR UNKNOWN INDICATION
     Route: 065
  14. ESOMEPRAZOLE. [Concomitant]
     Active Substance: ESOMEPRAZOLE MAGNESIUM
     Indication: PRODUCT USED FOR UNKNOWN INDICATION
     Dosage: 1 DF, WHILE FASTING
     Route: 065
  15. SERTRALINE [Concomitant]
     Active Substance: SERTRALINE HYDROCHLORIDE
     Indication: PRODUCT USED FOR UNKNOWN INDICATION
     Dosage: (1 AND 1/2 TABLETS AT BREAKFAST
     Route: 065

REACTIONS (4)
  - Urinary tract infection [Not Recovered/Not Resolved]
  - Decreased appetite [Unknown]
  - Hypersensitivity [Not Recovered/Not Resolved]
  - Kidney infection [Not Recovered/Not Resolved]

NARRATIVE: CASE EVENT DATE: 20181227
